FAERS Safety Report 11184543 (Version 7)
Quarter: 2016Q4

REPORT INFORMATION
  Report Type: Spontaneous
  Country: US (occurrence: US)
  Receive Date: 20150612
  Receipt Date: 20161118
  Transmission Date: 20170206
  Serious: Yes (Hospitalization, Other)
  Sender: FDA-Public Use
  Company Number: US-PFIZER INC-2015192800

PATIENT
  Age: 55 Year
  Sex: Female

DRUGS (16)
  1. XELJANZ [Suspect]
     Active Substance: TOFACITINIB CITRATE
     Dosage: UNK
  2. GLIPIZIDE. [Concomitant]
     Active Substance: GLIPIZIDE
     Dosage: UNK
  3. METHADONE [Concomitant]
     Active Substance: METHADONE HYDROCHLORIDE
     Dosage: UNK MG/ML, UNK
  4. PREDNISONE. [Concomitant]
     Active Substance: PREDNISONE
     Dosage: 10 MG, UNK
  5. XELJANZ [Suspect]
     Active Substance: TOFACITINIB CITRATE
     Indication: RHEUMATOID ARTHRITIS
     Dosage: 5 MG, 2X/DAY
     Route: 048
     Dates: start: 20150515
  6. DILAUDID [Concomitant]
     Active Substance: HYDROMORPHONE HYDROCHLORIDE
     Dosage: 2 MG, UNK
  7. ALLOPURINOL. [Concomitant]
     Active Substance: ALLOPURINOL
     Dosage: 100 MG, UNK
  8. CLOPIDOGREL [Concomitant]
     Active Substance: CLOPIDOGREL BISULFATE
     Dosage: 300 MG, UNK
  9. NAPROXEN. [Concomitant]
     Active Substance: NAPROXEN
     Dosage: 500 MG, UNK
  10. XELJANZ [Suspect]
     Active Substance: TOFACITINIB CITRATE
     Dosage: UNK
  11. XELJANZ [Suspect]
     Active Substance: TOFACITINIB CITRATE
     Dosage: 5 MG, 2X/DAY
     Route: 048
     Dates: start: 201604
  12. OXYCODONE [Concomitant]
     Active Substance: OXYCODONE
     Dosage: 5 UNK, UNK
  13. SUMATRIPTAN. [Concomitant]
     Active Substance: SUMATRIPTAN
     Dosage: 50 MG, UNK
  14. XELJANZ [Suspect]
     Active Substance: TOFACITINIB CITRATE
     Dosage: UNK
  15. FAMOTIDINE. [Concomitant]
     Active Substance: FAMOTIDINE
     Dosage: UNK
     Route: 050
  16. ORENCIA [Concomitant]
     Active Substance: ABATACEPT
     Dosage: 125 UNK, UNK
     Route: 050

REACTIONS (17)
  - Ulcer [Not Recovered/Not Resolved]
  - Arthritis infective [Unknown]
  - Arthralgia [Unknown]
  - Nodule [Not Recovered/Not Resolved]
  - Wound [Not Recovered/Not Resolved]
  - Joint swelling [Unknown]
  - Sepsis [Not Recovered/Not Resolved]
  - Dysgeusia [Not Recovered/Not Resolved]
  - Pulmonary mass [Not Recovered/Not Resolved]
  - Pain [Not Recovered/Not Resolved]
  - General physical condition abnormal [Not Recovered/Not Resolved]
  - Insomnia [Not Recovered/Not Resolved]
  - Dizziness [Not Recovered/Not Resolved]
  - Nausea [Not Recovered/Not Resolved]
  - Night sweats [Not Recovered/Not Resolved]
  - Condition aggravated [Not Recovered/Not Resolved]
  - Gout [Not Recovered/Not Resolved]
